FAERS Safety Report 12321737 (Version 1)
Quarter: 2016Q2

REPORT INFORMATION
  Report Type: Spontaneous
  Country: US (occurrence: US)
  Receive Date: 20160502
  Receipt Date: 20160502
  Transmission Date: 20160815
  Serious: Yes (Other)
  Sender: FDA-Public Use
  Company Number: US-CIPLA-2016US04334

PATIENT

DRUGS (3)
  1. DIGOXIN. [Suspect]
     Active Substance: DIGOXIN
  2. CLONAZEPAM. [Suspect]
     Active Substance: CLONAZEPAM
  3. WARFARIN [Suspect]
     Active Substance: WARFARIN

REACTIONS (3)
  - Overdose [Unknown]
  - Nodal rhythm [Unknown]
  - Unresponsive to stimuli [Unknown]
